FAERS Safety Report 10681053 (Version 2)
Quarter: 2015Q1

REPORT INFORMATION
  Report Type: Report from Study
  Country: US (occurrence: US)
  Receive Date: 20141229
  Receipt Date: 20150110
  Transmission Date: 20150720
  Serious: No
  Sender: FDA-Public Use
  Company Number: US-MYLANLABS-2014M1015510

PATIENT

DRUGS (2)
  1. METHOTREXATE [Suspect]
     Active Substance: METHOTREXATE
     Dosage: 1 ML, QW
     Route: 065
  2. ENBREL [Suspect]
     Active Substance: ETANERCEPT
     Indication: RHEUMATOID ARTHRITIS
     Dosage: 50 MG, QW
     Dates: start: 20140130

REACTIONS (3)
  - Wrong technique in drug usage process [Recovered/Resolved]
  - Haematoma [Recovered/Resolved]
  - Unevaluable event [Recovered/Resolved]

NARRATIVE: CASE EVENT DATE: 2014
